FAERS Safety Report 6864684-0 (Version None)
Quarter: 2010Q3

REPORT INFORMATION
  Report Type: 
  Country: None (occurrence: None)
  Receive Date: 20100721
  Receipt Date: 20080330
  Transmission Date: 20110219
  Serious: Yes (Other)
  Sender: FDA-Public Use
  Company Number: US-PFIZER INC-2008029658

PATIENT
  Sex: Female
  Weight: 70.4 kg

DRUGS (1)
  1. CHANTIX [Suspect]
     Indication: SMOKING CESSATION THERAPY
     Dates: start: 20070101

REACTIONS (4)
  - AGGRESSION [None]
  - ANXIETY [None]
  - DIARRHOEA [None]
  - SINUSITIS [None]
